FAERS Safety Report 7710581-8 (Version None)
Quarter: 2011Q3

REPORT INFORMATION
  Report Type: 
  Country: None (occurrence: None)
  Receive Date: 20110817
  Receipt Date: 20110802
  Transmission Date: 20111222
  Serious: Yes (Other)
  Sender: FDA-Public Use
  Company Number: 2011028859

PATIENT
  Age: 63 Year
  Sex: Female
  Weight: 93.441 kg

DRUGS (30)
  1. FOSAMAX [Concomitant]
  2. MELOXICAM [Concomitant]
  3. LEVOTHYROXINE SODIUM [Concomitant]
  4. FLONASE [Concomitant]
  5. PROVENTIL [Concomitant]
  6. POTASSIUM CHLORIDE [Concomitant]
  7. ANTIVERT [Concomitant]
  8. IPRATROPIUM BROMIDE [Concomitant]
  9. ULTRACET (ULTRACET) [Concomitant]
  10. VESICARE [Concomitant]
  11. SPIRIVA [Concomitant]
  12. SINGULAIR [Concomitant]
  13. LISINOPRIL [Concomitant]
  14. FOLIC ACID [Concomitant]
  15. CELEXA [Concomitant]
  16. LORCET-HD [Concomitant]
  17. FUROSEMIDE [Concomitant]
  18. NEXIUM [Concomitant]
  19. THEOPHYLLINE [Concomitant]
  20. CLARITIN [Concomitant]
  21. MOTRIN [Concomitant]
  22. PREDNISONE [Concomitant]
  23. ADVAIR DISKUS 100/50 [Concomitant]
  24. LIPITOR [Concomitant]
  25. HIZENTRA [Suspect]
     Indication: HYPOGAMMAGLOBULINAEMIA
     Dosage: (8 G 1X/WEEK, INFUSED 40ML QW VIA 2-3 SITES OVER 1-1.5 HOURS SUBCUTANEOUS), (SUBCUTANEOUS)
     Route: 058
     Dates: start: 20110725
  26. HIZENTRA [Suspect]
     Indication: HYPOGAMMAGLOBULINAEMIA
     Dosage: (8 G 1X/WEEK, INFUSED 40ML QW VIA 2-3 SITES OVER 1-1.5 HOURS SUBCUTANEOUS), (SUBCUTANEOUS)
     Route: 058
     Dates: start: 20110426
  27. HIZENTRA [Suspect]
     Indication: HYPOGAMMAGLOBULINAEMIA
     Dosage: (8 G 1X/WEEK, INFUSED 40ML QW VIA 2-3 SITES OVER 1-1.5 HOURS SUBCUTANEOUS), (SUBCUTANEOUS)
     Route: 058
     Dates: start: 20110531
  28. HIZENTRA [Suspect]
  29. CALTRATE (CALCIUM CARBONATE) [Concomitant]
  30. ASPIRIN [Concomitant]

REACTIONS (2)
  - LUNG INFECTION [None]
  - KIDNEY INFECTION [None]
